FAERS Safety Report 4628088-3 (Version None)
Quarter: 2005Q2

REPORT INFORMATION
  Report Type: 
  Country: None (occurrence: None)
  Receive Date: 20050404
  Receipt Date: 20050325
  Transmission Date: 20051028
  Serious: Yes (Hospitalization)
  Sender: FDA-Public Use
  Company Number: GXKR2005FR00838

PATIENT
  Age: 81 Year
  Sex: Male

DRUGS (5)
  1. FLUOXETINE [Suspect]
     Indication: FATIGUE
     Dosage: 10 MG/DAY, ORAL
     Route: 048
     Dates: start: 20050212, end: 20050218
  2. PLAVIX [Concomitant]
  3. PRAVASTATIN [Concomitant]
  4. ATACAND [Concomitant]
  5. BISOPROLOL FUMARATE [Suspect]

REACTIONS (5)
  - AGGRESSION [None]
  - IMPULSIVE BEHAVIOUR [None]
  - PHLEBOTOMY [None]
  - PHYSICAL ASSAULT [None]
  - SUICIDE ATTEMPT [None]
